FAERS Safety Report 8301877-X (Version None)
Quarter: 2012Q2

REPORT INFORMATION
  Report Type: 
  Country: None (occurrence: None)
  Receive Date: 20120420
  Receipt Date: 20120417
  Transmission Date: 20120825
  Serious: Yes (Hospitalization)
  Sender: FDA-Public Use
  Company Number: PHHY2012MX032668

PATIENT
  Sex: Female
  Weight: 80 kg

DRUGS (4)
  1. RASILEZ [Suspect]
     Indication: HYPERTENSION
     Dosage: 150 MG, DAILY
     Dates: start: 20110101
  2. ANALGESICS [Concomitant]
     Indication: TOOTHACHE
     Dosage: UNK UKN, WHEN SHE HAD TOOTH PAIN
  3. VIVITAR [Concomitant]
     Indication: CARDIAC FAILURE
     Dosage: UNK UKN, UNK
     Dates: start: 19820401
  4. COUMARIN [Concomitant]
     Dosage: UNK UKN, UNK

REACTIONS (8)
  - FALL [None]
  - PERIORBITAL HAEMATOMA [None]
  - DYSPHONIA [None]
  - TINNITUS [None]
  - HYPOACUSIS [None]
  - COUGH [None]
  - INFARCTION [None]
  - CERUMEN IMPACTION [None]
